FAERS Safety Report 10453061 (Version 1)
Quarter: 2014Q3

REPORT INFORMATION
  Report Type: Spontaneous
  Country: US (occurrence: None)
  Receive Date: 20140912
  Receipt Date: 20140912
  Transmission Date: 20150326
  Serious: Yes (Hospitalization)
  Sender: FDA-Public Use
  Company Number: None

PATIENT
  Age: 42 Year
  Sex: Male
  Weight: 83.46 kg

DRUGS (1)
  1. RITALIN [Suspect]
     Active Substance: METHYLPHENIDATE HYDROCHLORIDE
     Indication: ATTENTION DEFICIT/HYPERACTIVITY DISORDER
     Dosage: 1 PILL, FOUR TIMES DAILY, TAKEN BY MOUTH
     Route: 048
     Dates: start: 20140710, end: 20140810

REACTIONS (3)
  - Feeling abnormal [None]
  - Suspected counterfeit product [None]
  - Product quality issue [None]

NARRATIVE: CASE EVENT DATE: 20140203
